FAERS Safety Report 11356269 (Version 1)
Quarter: 2015Q3

REPORT INFORMATION
  Report Type: Spontaneous
  Country: US (occurrence: US)
  Receive Date: 20150807
  Receipt Date: 20150807
  Transmission Date: 20151125
  Serious: No
  Sender: FDA-Public Use
  Company Number: US-PFIZER INC-2015213563

PATIENT
  Age: 65 Year
  Sex: Female

DRUGS (15)
  1. LEVEMIR [Concomitant]
     Active Substance: INSULIN DETEMIR
     Dosage: UNK,(INJECT 15 UNITS UNDER SKIN NIGHTLY)
     Route: 058
     Dates: start: 20150122
  2. PRAVACHOL [Concomitant]
     Active Substance: PRAVASTATIN SODIUM
     Dosage: 80 MG, DAILY
     Route: 048
     Dates: start: 20150518
  3. ATROVENT [Concomitant]
     Active Substance: IPRATROPIUM BROMIDE
     Dosage: 2 DF, 4X/DAY ,(0.06% NASAL SPRAY), (2 SPRAYS
     Route: 045
     Dates: start: 20141020, end: 20141020
  4. PRINIVIL [Concomitant]
     Active Substance: LISINOPRIL
     Dosage: 2.5 MG, DAILY
     Route: 048
     Dates: start: 20150518
  5. PROVENTIL [Concomitant]
     Active Substance: ALBUTEROL
     Indication: WHEEZING
  6. VITAMIN C [Concomitant]
     Active Substance: ASCORBIC ACID
     Dosage: UNK
     Route: 048
  7. NEURONTIN [Concomitant]
     Active Substance: GABAPENTIN
     Dosage: 300 MG, 2X/DAY, (TAKE 1 CAPSULE (300MG TOTAL) BY MOUTH 2 (TWO) TIMES DAILY)
     Route: 048
     Dates: start: 20150518
  8. ZESTRIL [Concomitant]
     Active Substance: LISINOPRIL
     Dosage: 2.5 MG, DAILY
     Route: 048
     Dates: start: 20150518
  9. SYMBICORT [Concomitant]
     Active Substance: BUDESONIDE\FORMOTEROL FUMARATE DIHYDRATE
     Dosage: 1 DF, 2X/DAY,(INHALE 1 PUFF INTO THE LUNGS 2 (TWO) TIMES DAILY)
     Dates: start: 20150226
  10. DELTASONE [Concomitant]
     Active Substance: PREDNISONE
     Dosage: 10 MG, DAILY, (DAILY WITH BREAKFAST)
     Route: 048
     Dates: start: 20150518
  11. KLOR-CON [Concomitant]
     Active Substance: POTASSIUM CHLORIDE
     Dosage: 20 MEQ, DAILY
     Route: 048
     Dates: start: 20150518
  12. REVATIO [Suspect]
     Active Substance: SILDENAFIL CITRATE
     Indication: PULMONARY HYPERTENSION
     Dosage: 20 MG, 3X/DAY
     Route: 048
  13. PROVENTIL [Concomitant]
     Active Substance: ALBUTEROL
     Indication: DYSPNOEA
     Dosage: 2.5 MG, AS NEEDED (4 (FOUR) HOURS)
     Dates: start: 20140606
  14. ALBUTEROL HFA [Concomitant]
     Active Substance: ALBUTEROL SULFATE
     Dosage: 2 DF, AS NEEDED, (INHALE 2PUFFS INTO THE LUNGS)
     Dates: start: 20150309
  15. INSULIN ASPART [Concomitant]
     Active Substance: INSULIN ASPART
     Dosage: UNK, 3X/DAY, (INJECT 3 UNITS UNDER THE SKIN 3X DAILY BEFORE BREAKFAST, AFTER LUNCH, HS)
     Route: 058
     Dates: start: 20150122

REACTIONS (1)
  - Asthenia [Unknown]
